FAERS Safety Report 24114793 (Version 2)
Quarter: 2024Q3

REPORT INFORMATION
  Report Type: Spontaneous
  Country: US (occurrence: US)
  Receive Date: 20240721
  Receipt Date: 20240802
  Transmission Date: 20241017
  Serious: Yes (Other)
  Sender: DR REDDYS
  Company Number: None

PATIENT
  Age: 16 Year
  Sex: Male

DRUGS (4)
  1. FENTANYL [Suspect]
     Active Substance: FENTANYL\FENTANYL CITRATE
     Indication: Product used for unknown indication
     Dosage: DAILY SINCE AGE 15
  2. FENTANYL [Suspect]
     Active Substance: FENTANYL\FENTANYL CITRATE
     Dosage: RECENTLY REDUCED HIS USE TO EVERY 2 TO 3 DAYS
  3. FENTANYL [Suspect]
     Active Substance: FENTANYL\FENTANYL CITRATE
  4. OXYCODONE [Suspect]
     Active Substance: OXYCODONE
     Indication: Product used for unknown indication

REACTIONS (15)
  - Drug withdrawal syndrome [Recovering/Resolving]
  - Piloerection [Recovering/Resolving]
  - Diarrhoea [Recovering/Resolving]
  - Restlessness [Recovering/Resolving]
  - Arthralgia [Recovering/Resolving]
  - Anxiety [Recovering/Resolving]
  - Nausea [Recovering/Resolving]
  - Bone pain [Recovering/Resolving]
  - Abdominal discomfort [Recovering/Resolving]
  - Pain [Recovering/Resolving]
  - Suicidal ideation [Recovered/Resolved]
  - Product counterfeit [Recovering/Resolving]
  - Hyperhidrosis [Recovering/Resolving]
  - Drug use disorder [Unknown]
  - Yawning [Recovering/Resolving]
